FAERS Safety Report 7024195-9 (Version None)
Quarter: 2010Q4

REPORT INFORMATION
  Report Type: 
  Country: None (occurrence: None)
  Receive Date: 20101001
  Receipt Date: 20100928
  Transmission Date: 20110411
  Serious: Yes (Other)
  Sender: FDA-Public Use
  Company Number: US-BRISTOL-MYERS SQUIBB COMPANY-15308653

PATIENT
  Sex: Female

DRUGS (3)
  1. ORENCIA [Suspect]
  2. PREDNISONE [Concomitant]
  3. NEURONTIN [Concomitant]

REACTIONS (2)
  - INCREASED APPETITE [None]
  - SPINAL FUSION SURGERY [None]
